FAERS Safety Report 19175951 (Version 1)
Quarter: 2021Q2

REPORT INFORMATION
  Report Type: Report from Study
  Country: US (occurrence: US)
  Receive Date: 20210423
  Receipt Date: 20210423
  Transmission Date: 20210717
  Serious: Yes (Other)
  Sender: FDA-Public Use
  Company Number: US-JNJFOC-20170109417

PATIENT
  Age: 53 Year
  Sex: Male

DRUGS (40)
  1. IMBRUVICA [Suspect]
     Active Substance: IBRUTINIB
     Route: 048
     Dates: start: 20170131
  2. LISINOPRIL. [Concomitant]
     Active Substance: LISINOPRIL
  3. IMBRUVICA [Suspect]
     Active Substance: IBRUTINIB
     Route: 048
     Dates: start: 20161230
  4. IMBRUVICA [Suspect]
     Active Substance: IBRUTINIB
     Route: 048
     Dates: start: 20170417
  5. ATENOLOL. [Concomitant]
     Active Substance: ATENOLOL
     Dosage: 50.
  6. FAMOTIDINE. [Concomitant]
     Active Substance: FAMOTIDINE
  7. SPIRONOLACTONE. [Concomitant]
     Active Substance: SPIRONOLACTONE
  8. IMODIUM [Concomitant]
     Active Substance: LOPERAMIDE HYDROCHLORIDE
  9. ALBUTEROL. [Concomitant]
     Active Substance: ALBUTEROL
  10. LOPERAMIDE [Concomitant]
     Active Substance: LOPERAMIDE
  11. POTASSIUM CHLORIDE. [Concomitant]
     Active Substance: POTASSIUM CHLORIDE
  12. PREDNISONE. [Concomitant]
     Active Substance: PREDNISONE
  13. LYRICA [Concomitant]
     Active Substance: PREGABALIN
  14. VIAGRA [Concomitant]
     Active Substance: SILDENAFIL CITRATE
  15. MAGNESIUM [Concomitant]
     Active Substance: MAGNESIUM
  16. XANAX [Concomitant]
     Active Substance: ALPRAZOLAM
  17. DOXYCYCLINE. [Concomitant]
     Active Substance: DOXYCYCLINE
     Indication: MYCOBACTERIUM CHELONAE INFECTION
  18. METFORMIN [Concomitant]
     Active Substance: METFORMIN HYDROCHLORIDE
  19. PROCHLORPERAZINE. [Concomitant]
     Active Substance: PROCHLORPERAZINE
  20. MICAFUNGIN. [Concomitant]
     Active Substance: MICAFUNGIN SODIUM
     Route: 042
  21. ITRACONAZOLE. [Suspect]
     Active Substance: ITRACONAZOLE
     Indication: CANDIDA INFECTION
     Route: 016
     Dates: start: 20170702, end: 20170718
  22. AZITHROMYCIN ANHYDROUS. [Concomitant]
     Active Substance: AZITHROMYCIN ANHYDROUS
     Indication: MYCOBACTERIUM CHELONAE INFECTION
     Dosage: 200 MG/5ML
  23. VITAMIN D3 [Concomitant]
     Active Substance: CHOLECALCIFEROL
     Dosage: 2000 UNIT.
  24. SINGULAIR [Concomitant]
     Active Substance: MONTELUKAST SODIUM
  25. DECADRON [Concomitant]
     Active Substance: DEXAMETHASONE
  26. ASPIRIN. [Concomitant]
     Active Substance: ASPIRIN
  27. DIPHENHYDRAMINE. [Concomitant]
     Active Substance: DIPHENHYDRAMINE
  28. LACTOBACILLUS [Concomitant]
     Active Substance: LACTOBACILLUS ACIDOPHILUS
  29. OXYCODONE [Concomitant]
     Active Substance: OXYCODONE
  30. PEPCID [Concomitant]
     Active Substance: FAMOTIDINE
  31. CARDIZEM [Concomitant]
     Active Substance: DILTIAZEM HYDROCHLORIDE
  32. IMBRUVICA [Suspect]
     Active Substance: IBRUTINIB
     Indication: CHRONIC LYMPHOCYTIC LEUKAEMIA
     Route: 048
     Dates: start: 20161229, end: 20180428
  33. VITAMIN D3 [Concomitant]
     Active Substance: CHOLECALCIFEROL
     Dosage: 1000 UNIT.
  34. DILTIAZEM. [Concomitant]
     Active Substance: DILTIAZEM
  35. IBUPROFEN. [Concomitant]
     Active Substance: IBUPROFEN
  36. METAMUCIL [Concomitant]
     Active Substance: PLANTAGO SEED
  37. LOMOTIL [Concomitant]
     Active Substance: ATROPINE SULFATE\DIPHENOXYLATE HYDROCHLORIDE
  38. LIDOCAINE. [Concomitant]
     Active Substance: LIDOCAINE
  39. DULERA [Concomitant]
     Active Substance: FORMOTEROL FUMARATE DIHYDRATE\MOMETASONE FUROATE
  40. HEPARIN LOCK FLUSH [Concomitant]
     Active Substance: HEPARIN SODIUM

REACTIONS (49)
  - Hair disorder [Not Recovered/Not Resolved]
  - Depression [Unknown]
  - Hair texture abnormal [Not Recovered/Not Resolved]
  - Insomnia [Unknown]
  - Pneumonia [Unknown]
  - Rash papular [Not Recovered/Not Resolved]
  - Nasopharyngitis [Not Recovered/Not Resolved]
  - Nausea [Not Recovered/Not Resolved]
  - White blood cell count decreased [Not Recovered/Not Resolved]
  - Adverse drug reaction [Recovering/Resolving]
  - Alopecia [Not Recovered/Not Resolved]
  - Laboratory test abnormal [Unknown]
  - Nail disorder [Unknown]
  - Contusion [Not Recovered/Not Resolved]
  - Cough [Unknown]
  - Skin ulcer [Unknown]
  - Haematocrit decreased [Unknown]
  - Rash pruritic [Not Recovered/Not Resolved]
  - Diarrhoea [Not Recovered/Not Resolved]
  - Constipation [Not Recovered/Not Resolved]
  - Petechiae [Not Recovered/Not Resolved]
  - Candida infection [Unknown]
  - Onychoclasis [Unknown]
  - Eye pruritus [Not Recovered/Not Resolved]
  - Dry mouth [Not Recovered/Not Resolved]
  - Oral contusion [Not Recovered/Not Resolved]
  - Lymphocyte count decreased [Unknown]
  - Myalgia [Not Recovered/Not Resolved]
  - Arthralgia [Not Recovered/Not Resolved]
  - Rash [Recovering/Resolving]
  - Platelet count decreased [Not Recovered/Not Resolved]
  - Hypogeusia [Not Recovered/Not Resolved]
  - Hyposmia [Not Recovered/Not Resolved]
  - Heart rate abnormal [Unknown]
  - Blood magnesium decreased [Unknown]
  - Haemorrhage [Unknown]
  - Fatigue [Not Recovered/Not Resolved]
  - Glossodynia [Unknown]
  - Infusion site bruising [Unknown]
  - Bone pain [Not Recovered/Not Resolved]
  - Viral infection [Not Recovered/Not Resolved]
  - Dry skin [Not Recovered/Not Resolved]
  - Skin fissures [Unknown]
  - Pyrexia [Not Recovered/Not Resolved]
  - Haemoglobin decreased [Not Recovered/Not Resolved]
  - Stomatitis [Unknown]
  - Red blood cell count decreased [Not Recovered/Not Resolved]
  - Sensitive skin [Not Recovered/Not Resolved]
  - Visual impairment [Not Recovered/Not Resolved]

NARRATIVE: CASE EVENT DATE: 20161229
